FAERS Safety Report 4803187-1 (Version None)
Quarter: 2005Q4

REPORT INFORMATION
  Report Type: 
  Country: None (occurrence: None)
  Receive Date: 20051019
  Receipt Date: 20050921
  Transmission Date: 20060501
  Serious: Yes (Hospitalization)
  Sender: FDA-Public Use
  Company Number: US-MERCK-0509USA03127

PATIENT
  Age: 65 Year
  Sex: Male

DRUGS (2)
  1. ACTOS [Concomitant]
     Route: 065
     Dates: end: 20050801
  2. VYTORIN [Suspect]
     Indication: HYPERLIPIDAEMIA
     Route: 048
     Dates: start: 20050101, end: 20050801

REACTIONS (2)
  - INFLUENZA LIKE ILLNESS [None]
  - RHABDOMYOLYSIS [None]
